FAERS Safety Report 12209671 (Version 3)
Quarter: 2017Q1

REPORT INFORMATION
  Report Type: Report from Study
  Country: CA (occurrence: CA)
  Receive Date: 20160325
  Receipt Date: 20170227
  Transmission Date: 20170428
  Serious: Yes (Other)
  Sender: FDA-Public Use
  Company Number: CA-ROCHE-1717959

PATIENT
  Sex: Female

DRUGS (11)
  1. VISKEN [Concomitant]
     Active Substance: PINDOLOL
  2. RITUXAN [Suspect]
     Active Substance: RITUXIMAB
     Indication: RHEUMATOID ARTHRITIS
     Route: 042
     Dates: start: 20111024
  3. NEXIUM [Concomitant]
     Active Substance: ESOMEPRAZOLE MAGNESIUM
  4. VASOTEC (ENALAPRIL MALEATE) [Concomitant]
  5. LIPITOR [Concomitant]
     Active Substance: ATORVASTATIN CALCIUM
  6. BISOPROLOL [Concomitant]
     Active Substance: BISOPROLOL
  7. ACETAMINOPHEN. [Concomitant]
     Active Substance: ACETAMINOPHEN
     Indication: PREMEDICATION
     Route: 048
     Dates: start: 20111024
  8. FOSAMAX [Concomitant]
     Active Substance: ALENDRONATE SODIUM
  9. METHYLPREDNISOLONE. [Concomitant]
     Active Substance: METHYLPREDNISOLONE
     Indication: PREMEDICATION
     Route: 042
     Dates: start: 20111024
  10. DIPHENHYDRAMINE. [Concomitant]
     Active Substance: DIPHENHYDRAMINE
     Indication: PREMEDICATION
     Route: 048
     Dates: start: 20111024
  11. SULPHASALAZINE [Concomitant]
     Active Substance: SULFASALAZINE

REACTIONS (4)
  - Weight increased [Not Recovered/Not Resolved]
  - Myocardial infarction [Unknown]
  - Neoplasm malignant [Unknown]
  - Pulmonary hypertension [Unknown]
